FAERS Safety Report 24113655 (Version 3)
Quarter: 2024Q3

REPORT INFORMATION
  Report Type: Report from Study
  Country: US (occurrence: US)
  Receive Date: 20240720
  Receipt Date: 20240904
  Transmission Date: 20241017
  Serious: Yes (Hospitalization, Other)
  Sender: ABBVIE
  Company Number: US-ABBVIE-5842838

PATIENT
  Sex: Male

DRUGS (1)
  1. HUMIRA [Suspect]
     Active Substance: ADALIMUMAB
     Indication: Colitis ulcerative
     Dosage: CITRATE FREE
     Route: 058
     Dates: start: 20231012

REACTIONS (6)
  - Jaundice [Not Recovered/Not Resolved]
  - Hepatic failure [Unknown]
  - Stoma care [Recovered/Resolved with Sequelae]
  - Pancreatitis [Not Recovered/Not Resolved]
  - Neoplasm malignant [Unknown]
  - Pain [Not Recovered/Not Resolved]

NARRATIVE: CASE EVENT DATE: 20240101
